FAERS Safety Report 10232665 (Version 5)
Quarter: 2014Q3

REPORT INFORMATION
  Report Type: Spontaneous
  Country: US (occurrence: US)
  Receive Date: 20140612
  Receipt Date: 20140814
  Transmission Date: 20150326
  Serious: Yes (Life-Threatening, Hospitalization, Disabling)
  Sender: FDA-Public Use
  Company Number: US-JNJFOC-20140603461

PATIENT
  Age: 61 Year
  Sex: Female
  Weight: 86.18 kg

DRUGS (10)
  1. REMICADE [Suspect]
     Active Substance: INFLIXIMAB
     Indication: DERMATOSIS
     Route: 042
     Dates: start: 201310
  2. REMICADE [Suspect]
     Active Substance: INFLIXIMAB
     Indication: PSORIATIC ARTHROPATHY
     Route: 042
     Dates: start: 201402
  3. REMICADE [Suspect]
     Active Substance: INFLIXIMAB
     Indication: DERMATOSIS
     Route: 042
     Dates: start: 201402
  4. REMICADE [Suspect]
     Active Substance: INFLIXIMAB
     Indication: DERMATOSIS
     Route: 042
     Dates: start: 201401, end: 201401
  5. REMICADE [Suspect]
     Active Substance: INFLIXIMAB
     Indication: PSORIATIC ARTHROPATHY
     Route: 042
     Dates: start: 201310
  6. REMICADE [Suspect]
     Active Substance: INFLIXIMAB
     Indication: PSORIATIC ARTHROPATHY
     Route: 042
     Dates: start: 201401, end: 201401
  7. LEVOXYL [Concomitant]
     Active Substance: LEVOTHYROXINE SODIUM
     Indication: HYPOTHYROIDISM
     Route: 048
  8. ESTRACE [Concomitant]
     Active Substance: ESTRADIOL
     Indication: BLOOD OESTROGEN
     Route: 065
  9. ZIAC [Concomitant]
     Active Substance: BISOPROLOL FUMARATE\HYDROCHLOROTHIAZIDE
     Indication: HYPERTENSION
     Route: 048
  10. ESTRACE [Concomitant]
     Active Substance: ESTRADIOL
     Indication: HYSTERECTOMY
     Route: 065

REACTIONS (6)
  - Loss of employment [Unknown]
  - Pseudomononucleosis [Recovered/Resolved]
  - Back pain [Recovered/Resolved]
  - Impaired work ability [Unknown]
  - Drug-induced liver injury [Recovered/Resolved]
  - Hepatic cirrhosis [Recovered/Resolved]

NARRATIVE: CASE EVENT DATE: 201310
